FAERS Safety Report 8030487-7 (Version None)
Quarter: 2012Q1

REPORT INFORMATION
  Report Type: 
  Country: None (occurrence: None)
  Receive Date: 20120109
  Receipt Date: 20120106
  Transmission Date: 20120608
  Serious: No
  Sender: FDA-Public Use
  Company Number: US-PFIZER INC-2012004851

PATIENT
  Sex: Male
  Weight: 80.726 kg

DRUGS (5)
  1. SOMA [Concomitant]
     Dosage: UNK
  2. ATIVAN [Concomitant]
     Dosage: UNK
  3. CHANTIX [Suspect]
     Indication: SMOKING CESSATION THERAPY
     Dosage: 0.5 MG, 1X/DAY
     Route: 048
     Dates: start: 20120101
  4. ASPIRIN [Concomitant]
     Dosage: UNK, 1X/DAY
  5. LUVOX [Concomitant]
     Dosage: UNK

REACTIONS (2)
  - THINKING ABNORMAL [None]
  - SOMNOLENCE [None]
